FAERS Safety Report 7597384-2 (Version None)
Quarter: 2011Q3

REPORT INFORMATION
  Report Type: 
  Country: None (occurrence: None)
  Receive Date: 20110708
  Receipt Date: 20110629
  Transmission Date: 20111222
  Serious: Yes (Hospitalization, Other)
  Sender: FDA-Public Use
  Company Number: IE-US-EMD SERONO, INC.-7036033

PATIENT
  Sex: Female

DRUGS (4)
  1. REBIF [Suspect]
     Indication: RELAPSING-REMITTING MULTIPLE SCLEROSIS
     Dates: start: 20101026
  2. REBIF [Suspect]
     Dates: end: 20110601
  3. REBIF [Suspect]
     Dates: start: 20110601
  4. REBIF [Suspect]
     Dates: end: 20101201

REACTIONS (4)
  - OOPHORECTOMY [None]
  - URINARY TRACT INFECTION [None]
  - HYSTERECTOMY [None]
  - NOSOCOMIAL INFECTION [None]
